FAERS Safety Report 21804353 (Version 1)
Quarter: 2023Q1

REPORT INFORMATION
  Report Type: Spontaneous
  Country: RU (occurrence: RU)
  Receive Date: 20230102
  Receipt Date: 20230102
  Transmission Date: 20230418
  Serious: Yes (Life-Threatening)
  Sender: FDA-Public Use
  Company Number: RU-002147023-NVSC2022RU301719

PATIENT
  Age: 11 Year
  Sex: Male
  Weight: 34 kg

DRUGS (4)
  1. XOLAIR [Suspect]
     Active Substance: OMALIZUMAB
     Indication: Asthma
     Dosage: 150 MG, EVERY 4 WEEKS
     Route: 058
     Dates: start: 20200624
  2. XOLAIR [Suspect]
     Active Substance: OMALIZUMAB
     Dosage: 150 MG
     Route: 058
     Dates: start: 20220919, end: 20220919
  3. BUDENIT STERI NEB [Concomitant]
     Indication: Asthma
     Dosage: 18.75 MG, QD (12.5 MG IN THE MORNING AND 6.25 MG IN THE EVENING)
     Dates: start: 20200624
  4. FORMISONID NATIV [Concomitant]
     Indication: Asthma
     Dosage: 84.5 UG (80 MCG + 4.5 MCG) (120 DOSES)
     Dates: start: 20220916, end: 20220926

REACTIONS (2)
  - Dyspnoea [Unknown]
  - Cough [Unknown]

NARRATIVE: CASE EVENT DATE: 20220916
